FAERS Safety Report 5175465-0 (Version None)
Quarter: 2006Q4

REPORT INFORMATION
  Report Type: 
  Country: None (occurrence: None)
  Receive Date: 20061215
  Receipt Date: 20061208
  Transmission Date: 20070319
  Serious: Yes (Hospitalization)
  Sender: FDA-Public Use
  Company Number: US-JNJFOC-20060702730

PATIENT
  Sex: Male
  Weight: 115.67 kg

DRUGS (12)
  1. DURAGESIC-100 [Suspect]
     Indication: PAIN
     Route: 062
  2. HUMALOG [Concomitant]
     Indication: DIABETES MELLITUS
     Route: 058
  3. LEVEMIR [Concomitant]
     Indication: DIABETES MELLITUS
     Route: 058
  4. NEURONTIN [Concomitant]
     Indication: NEUROPATHY
     Route: 048
  5. ACIPHEX [Concomitant]
     Indication: GASTROINTESTINAL DISORDER
     Route: 048
  6. CELEBREX [Concomitant]
     Indication: ARTHRITIS
     Route: 048
  7. CLONAZEPAM [Concomitant]
     Indication: DEPRESSION
     Route: 048
  8. LIPITOR [Concomitant]
     Indication: BLOOD CHOLESTEROL
     Route: 048
  9. SEROQUEL [Concomitant]
     Indication: SLEEP DISORDER
     Route: 048
  10. EFFEXOR XR [Concomitant]
     Indication: NEUROPATHY
     Route: 048
  11. ANDROGEL [Concomitant]
     Indication: BLOOD TESTOSTERONE DECREASED
     Dosage: TWO 5-G PATCHES
     Route: 062
  12. DARVOCET [Concomitant]
     Indication: BREAKTHROUGH PAIN
     Route: 048

REACTIONS (9)
  - AGITATION [None]
  - DIABETIC FOOT [None]
  - EYE HAEMORRHAGE [None]
  - FEELING ABNORMAL [None]
  - HYPERHIDROSIS [None]
  - MEMORY IMPAIRMENT [None]
  - NERVOUSNESS [None]
  - PHARMACEUTICAL PRODUCT COMPLAINT [None]
  - THERAPEUTIC RESPONSE DECREASED [None]
